FAERS Safety Report 8801584 (Version 2)
Quarter: 2013Q2

REPORT INFORMATION
  Report Type: Spontaneous
  Country: US (occurrence: US)
  Receive Date: 20120921
  Receipt Date: 20130422
  Transmission Date: 20140414
  Serious: Yes (Other)
  Sender: FDA-Public Use
  Company Number: US-BAYER-2012-098140

PATIENT
  Age: 21 Year
  Sex: Female

DRUGS (12)
  1. YAZ [Suspect]
  2. YASMIN [Suspect]
  3. OCELLA [Suspect]
  4. TYLENOL [PARACETAMOL] [Concomitant]
     Indication: ABDOMINAL PAIN LOWER
     Dosage: UNK
     Dates: start: 20101227
  5. DEMEROL [Concomitant]
     Dosage: 25 MG, UNK
     Route: 030
     Dates: start: 20110117
  6. ZOFRAN [Concomitant]
     Dosage: UNK
  7. PERCOCET [Concomitant]
     Indication: HEADACHE
     Dosage: UNK
  8. PHENERGAN [PROMETHAZINE HYDROCHLORIDE] [Concomitant]
     Dosage: 50 MG, UNK
     Route: 030
     Dates: start: 20110117, end: 20110119
  9. CAFFEINE [Concomitant]
     Indication: HEADACHE
     Dosage: UNK
     Dates: start: 20110119
  10. PHENERGAN [Concomitant]
     Indication: NAUSEA
     Dosage: 12.5 MG, UNK
     Route: 042
  11. BENADRYL [Concomitant]
     Indication: HEADACHE
     Dosage: 25 MG, UNK
  12. TORADOL [Concomitant]
     Indication: HEADACHE
     Dosage: 30 MG, UNK
     Route: 042

REACTIONS (2)
  - Injury [None]
  - Intracranial venous sinus thrombosis [Recovered/Resolved]
